FAERS Safety Report 9441003 (Version 1)
Quarter: 2013Q3

REPORT INFORMATION
  Report Type: Spontaneous
  Country: US (occurrence: US)
  Receive Date: 20130805
  Receipt Date: 20130805
  Transmission Date: 20140515
  Serious: Yes (Hospitalization)
  Sender: FDA-Public Use
  Company Number: US-UCBSA-093471

PATIENT
  Age: 57 Year
  Sex: Male

DRUGS (13)
  1. CIMZIA [Suspect]
     Indication: CROHN^S DISEASE
     Route: 058
     Dates: start: 2010
  2. IMURAN [Concomitant]
     Route: 048
     Dates: start: 1999
  3. MORPHINE ER [Concomitant]
     Indication: CROHN^S DISEASE
     Route: 048
     Dates: start: 2008
  4. FENTANYL [Concomitant]
     Indication: CROHN^S DISEASE
     Route: 062
     Dates: start: 2011
  5. MORPHINE LIQUID [Concomitant]
     Indication: CROHN^S DISEASE
     Dosage: TAKES 1.5ML ONCE 4HRS FOR BREAK THROUGH PAIN PRN
     Route: 048
     Dates: start: 201301
  6. PENTASA [Concomitant]
     Indication: CROHN^S DISEASE
     Route: 048
     Dates: start: 1999
  7. PREDNISONE [Concomitant]
     Indication: CROHN^S DISEASE
     Dosage: CURRENT DOSING 30 MG BUT HAS BEEN ON VARIOUS DOSINGS
     Route: 048
     Dates: start: 1999
  8. RANITIDINE [Concomitant]
     Indication: GASTROOESOPHAGEAL REFLUX DISEASE
     Route: 048
     Dates: start: 2000
  9. FLOMAX [Concomitant]
     Indication: URINARY RETENTION
     Route: 048
     Dates: start: 201301
  10. ZOFRAN [Concomitant]
     Indication: PROPHYLAXIS OF NAUSEA AND VOMITING
     Dosage: USALLY TWO TIMES
     Route: 048
     Dates: start: 2012
  11. ADDERALL [Concomitant]
     Indication: CENTRAL NERVOUS SYSTEM STIMULATION
     Route: 048
     Dates: start: 2011
  12. ZOLOFT [Concomitant]
     Indication: DEPRESSION
     Route: 048
     Dates: start: 2000
  13. FIORICET [Concomitant]
     Indication: MIGRAINE
     Dosage: DOSE: PRN
     Route: 048

REACTIONS (6)
  - Sepsis [Recovering/Resolving]
  - Abdominal pain [Unknown]
  - Headache [Recovered/Resolved]
  - Weight decreased [Not Recovered/Not Resolved]
  - Malnutrition [Not Recovered/Not Resolved]
  - Drug ineffective [Not Recovered/Not Resolved]
